FAERS Safety Report 10565699 (Version 1)
Quarter: 2014Q4

REPORT INFORMATION
  Report Type: Spontaneous
  Country: US (occurrence: None)
  Receive Date: 20141104
  Receipt Date: 20141104
  Transmission Date: 20150529
  Serious: No
  Sender: FDA-Public Use
  Company Number: None

PATIENT

DRUGS (1)
  1. PREMASOL [Suspect]
     Active Substance: AMINO ACIDS
     Indication: PARENTERAL NUTRITION
     Dates: start: 20141021, end: 20141028

REACTIONS (3)
  - Product contamination microbial [None]
  - Product odour abnormal [None]
  - Product contamination [None]

NARRATIVE: CASE EVENT DATE: 20141028
